FAERS Safety Report 17175181 (Version 1)
Quarter: 2019Q4

REPORT INFORMATION
  Report Type: Spontaneous
  Country: US (occurrence: US)
  Receive Date: 20191126
  Receipt Date: 20191126
  Transmission Date: 20200122
  Serious: Yes (Life-Threatening, Disabling)
  Sender: FDA-Public Use
  Company Number: None

PATIENT
  Age: 52 Year
  Sex: Female
  Weight: 113.4 kg

DRUGS (2)
  1. LEVOTHYROXINE. [Suspect]
     Active Substance: LEVOTHYROXINE
     Route: 048
     Dates: start: 201908, end: 201908
  2. VITAMINS, LIQUID [Concomitant]

REACTIONS (10)
  - Decreased appetite [None]
  - Back pain [None]
  - Muscular weakness [None]
  - Palpitations [None]
  - Gait disturbance [None]
  - Fatigue [None]
  - Product taste abnormal [None]
  - Treatment failure [None]
  - Weight increased [None]
  - Alopecia [None]
